FAERS Safety Report 22196940 (Version 2)
Quarter: 2023Q2

REPORT INFORMATION
  Report Type: Report from Study
  Country: US (occurrence: US)
  Receive Date: 20230411
  Receipt Date: 20230515
  Transmission Date: 20230722
  Serious: Yes (Hospitalization, Other)
  Sender: FDA-Public Use
  Company Number: US-GILEAD-2023-0623589

PATIENT
  Sex: Male

DRUGS (1)
  1. AZTREONAM LYSINE [Suspect]
     Active Substance: AZTREONAM LYSINE
     Indication: Infective pulmonary exacerbation of cystic fibrosis
     Dosage: 75 MG, TID,ALTERNATE EVERY OTHER 28 DAYS
     Route: 055

REACTIONS (1)
  - Infective pulmonary exacerbation of cystic fibrosis [Not Recovered/Not Resolved]
